FAERS Safety Report 12402864 (Version 2)
Quarter: 2016Q2

REPORT INFORMATION
  Report Type: Spontaneous
  Country: US (occurrence: US)
  Receive Date: 20160525
  Receipt Date: 20160527
  Transmission Date: 20160815
  Serious: No
  Sender: FDA-Public Use
  Company Number: US-SA-2016SA081615

PATIENT
  Age: 68 Year
  Sex: Female

DRUGS (3)
  1. PREDNISONE. [Concomitant]
     Active Substance: PREDNISONE
  2. LANTUS [Suspect]
     Active Substance: INSULIN GLARGINE
     Dosage: FORM: VIAL DOSE:40 UNIT(S)
     Route: 065
     Dates: start: 201512
  3. HUMULIN NOS [Concomitant]
     Active Substance: INSULIN HUMAN

REACTIONS (2)
  - Incorrect product storage [Unknown]
  - Hypoacusis [Unknown]
